FAERS Safety Report 7809589-3 (Version None)
Quarter: 2011Q4

REPORT INFORMATION
  Report Type: 
  Country: None (occurrence: None)
  Receive Date: 20111012
  Receipt Date: 20111006
  Transmission Date: 20120403
  Serious: Yes (Hospitalization, Disabling, Other)
  Sender: FDA-Public Use
  Company Number: US-MERCK-1108USA00179

PATIENT
  Age: 60 Year
  Sex: Female

DRUGS (5)
  1. EFFEXOR [Concomitant]
     Route: 065
     Dates: start: 20030101
  2. FOSAMAX [Suspect]
     Indication: OSTEOPOROSIS
     Route: 048
     Dates: start: 20031001, end: 20090801
  3. TAMOXIFEN CITRATE [Concomitant]
     Route: 065
     Dates: start: 20031001, end: 20080101
  4. FEMARA [Concomitant]
     Route: 065
     Dates: start: 20050101, end: 20050101
  5. FOSAMAX [Suspect]
     Indication: OSTEOPOROSIS PROPHYLAXIS
     Route: 048
     Dates: start: 20031001, end: 20090801

REACTIONS (7)
  - STRESS FRACTURE [None]
  - POST PROCEDURAL HAEMATOMA [None]
  - BONE DISORDER [None]
  - BONE GRAFT [None]
  - POSTOPERATIVE WOUND INFECTION [None]
  - FEMUR FRACTURE [None]
  - LOW TURNOVER OSTEOPATHY [None]
